FAERS Safety Report 17143102 (Version 4)
Quarter: 2021Q3

REPORT INFORMATION
  Report Type: Spontaneous
  Country: US (occurrence: US)
  Receive Date: 20191211
  Receipt Date: 20210824
  Transmission Date: 20211014
  Serious: Yes (Death, Hospitalization)
  Sender: FDA-Public Use
  Company Number: US-VIFOR (INTERNATIONAL) INC.-VIT-2019-16004

PATIENT
  Age: 63 Year
  Sex: Male

DRUGS (3)
  1. VELTASSA [Suspect]
     Active Substance: PATIROMER
     Indication: HYPERKALAEMIA
     Route: 048
     Dates: start: 201906
  2. VELTASSA [Suspect]
     Active Substance: PATIROMER
     Route: 048
     Dates: start: 20210805
  3. VELTASSA [Suspect]
     Active Substance: PATIROMER
     Route: 048
     Dates: start: 2020

REACTIONS (6)
  - Off label use [Unknown]
  - Blood potassium increased [Unknown]
  - Treatment noncompliance [Unknown]
  - Overdose [Unknown]
  - Death [Fatal]
  - Finger amputation [Unknown]

NARRATIVE: CASE EVENT DATE: 201906
